FAERS Safety Report 23695536 (Version 1)
Quarter: 2024Q2

REPORT INFORMATION
  Report Type: Spontaneous
  Country: US (occurrence: US)
  Receive Date: 20240402
  Receipt Date: 20240402
  Transmission Date: 20240715
  Serious: Yes (Other)
  Sender: FDA-Public Use
  Company Number: US-APOTEX-2024AP003928

PATIENT
  Age: 62 Year
  Sex: Female

DRUGS (13)
  1. LITHIUM [Suspect]
     Active Substance: LITHIUM
     Indication: Bipolar disorder
     Dosage: 450 MILLIGRAM, BID
     Route: 065
  2. LITHIUM [Suspect]
     Active Substance: LITHIUM
     Indication: Catatonia
  3. LITHIUM [Suspect]
     Active Substance: LITHIUM
     Indication: Mania
  4. RISPERIDONE [Suspect]
     Active Substance: RISPERIDONE
     Indication: Bipolar disorder
     Dosage: 4 MILLIGRAM, QD
     Route: 065
  5. RISPERIDONE [Suspect]
     Active Substance: RISPERIDONE
     Indication: Catatonia
  6. RISPERIDONE [Suspect]
     Active Substance: RISPERIDONE
     Indication: Mania
  7. CARBAMAZEPINE [Suspect]
     Active Substance: CARBAMAZEPINE
     Indication: Mood swings
     Dosage: 200 MILLIGRAM, BID
     Route: 065
  8. LURASIDONE [Concomitant]
     Active Substance: LURASIDONE
     Indication: Bipolar disorder
     Dosage: 80 MILLIGRAM, QD
     Route: 065
  9. LURASIDONE [Concomitant]
     Active Substance: LURASIDONE
     Indication: Catatonia
     Dosage: 120 MILLIGRAM, QD
     Route: 065
  10. LURASIDONE [Concomitant]
     Active Substance: LURASIDONE
     Indication: Mania
  11. LORAZEPAM [Concomitant]
     Active Substance: LORAZEPAM
     Indication: Bipolar disorder
     Dosage: 2 MILLIGRAM, TID
     Route: 065
  12. LORAZEPAM [Concomitant]
     Active Substance: LORAZEPAM
     Indication: Catatonia
     Dosage: 4 MILLIGRAM, TID
     Route: 065
  13. LORAZEPAM [Concomitant]
     Active Substance: LORAZEPAM
     Indication: Mania
     Dosage: 1 MILLIGRAM, TID
     Route: 065

REACTIONS (3)
  - Psychotic symptom [Recovered/Resolved]
  - Leukopenia [Unknown]
  - Nephrogenic diabetes insipidus [Recovered/Resolved]
